FAERS Safety Report 9836639 (Version 1)
Quarter: 2014Q1

REPORT INFORMATION
  Report Type: Spontaneous
  Country: US (occurrence: None)
  Receive Date: 20140116
  Receipt Date: 20140116
  Transmission Date: 20141002
  Serious: No
  Sender: FDA-Public Use
  Company Number: None

PATIENT
  Sex: Female

DRUGS (1)
  1. LEVETIRACETAM 500 MG [Suspect]
     Indication: CONVULSION
     Dosage: 4  DAILY BY MOUTH
     Route: 048
     Dates: start: 200812, end: 200903

REACTIONS (1)
  - Convulsion [None]
